FAERS Safety Report 14012268 (Version 4)
Quarter: 2017Q4

REPORT INFORMATION
  Report Type: Spontaneous
  Country: FR (occurrence: FR)
  Receive Date: 20170926
  Receipt Date: 20171122
  Transmission Date: 20180321
  Serious: Yes (Death, Other)
  Sender: FDA-Public Use
  Company Number: FR-JNJFOC-20170925560

PATIENT
  Age: 84 Year
  Sex: Male

DRUGS (5)
  1. XARELTO [Suspect]
     Active Substance: RIVAROXABAN
     Indication: ATRIAL FIBRILLATION
     Dosage: XARELTO 20 MG
     Route: 048
     Dates: start: 201210
  2. NEBILOX [Concomitant]
     Active Substance: NEBIVOLOL HYDROCHLORIDE
     Route: 065
  3. EZETROL [Concomitant]
     Active Substance: EZETIMIBE
     Route: 065
  4. LESCOL [Concomitant]
     Active Substance: FLUVASTATIN SODIUM
     Route: 065
  5. FRUSEMIDE [Concomitant]
     Active Substance: FUROSEMIDE
     Route: 065

REACTIONS (3)
  - Haemorrhagic transformation stroke [Fatal]
  - Drug ineffective [Unknown]
  - Ischaemic stroke [Fatal]

NARRATIVE: CASE EVENT DATE: 20170918
